FAERS Safety Report 5421825-X (Version None)
Quarter: 2007Q3

REPORT INFORMATION
  Report Type: 
  Country: None (occurrence: None)
  Receive Date: 20070820
  Receipt Date: 20070816
  Transmission Date: 20080115
  Serious: Yes (Life-Threatening, Other)
  Sender: FDA-Public Use
  Company Number: 07082222

PATIENT
  Age: 45 Year
  Sex: Male

DRUGS (1)
  1. TRIPLE ANTIBIOTIC OINTMENT NOS [Suspect]
     Indication: EXCORIATION
     Dosage: TOPICAL
     Route: 061

REACTIONS (1)
  - ANAPHYLACTIC REACTION [None]
